FAERS Safety Report 21994704 (Version 1)
Quarter: 2023Q1

REPORT INFORMATION
  Report Type: Spontaneous
  Country: US (occurrence: US)
  Receive Date: 20230215
  Receipt Date: 20230215
  Transmission Date: 20230418
  Serious: No
  Sender: FDA-Public Use
  Company Number: US-PFIZER INC-202300066821

PATIENT

DRUGS (2)
  1. CIBINQO [Interacting]
     Active Substance: ABROCITINIB
     Dosage: UNK
  2. FLUCONAZOLE [Interacting]
     Active Substance: FLUCONAZOLE
     Dosage: UNK

REACTIONS (2)
  - Drug interaction [Unknown]
  - Fungal infection [Unknown]
